FAERS Safety Report 12109431 (Version 2)
Quarter: 2016Q1

REPORT INFORMATION
  Report Type: Report from Study
  Country: ES (occurrence: ES)
  Receive Date: 20160224
  Receipt Date: 20160302
  Transmission Date: 20160526
  Serious: Yes (Hospitalization)
  Sender: FDA-Public Use
  Company Number: ES-ABBVIE-16P-144-1542387-00

PATIENT
  Age: 69 Year
  Sex: Female

DRUGS (2)
  1. DUODOPA [Suspect]
     Active Substance: CARBIDOPA\LEVODOPA
     Indication: PARKINSON^S DISEASE
     Route: 050
     Dates: start: 201510
  2. DUODOPA [Suspect]
     Active Substance: CARBIDOPA\LEVODOPA
     Dosage: CD DECREASED BY 0.2 ML
     Route: 050
     Dates: end: 20160224

REACTIONS (17)
  - Grip strength decreased [Unknown]
  - Pain in extremity [Unknown]
  - Dysstasia [Unknown]
  - Fall [Unknown]
  - General physical health deterioration [Unknown]
  - Fine motor skill dysfunction [Unknown]
  - Anxiety [Unknown]
  - Dyskinesia [Unknown]
  - Panic attack [Unknown]
  - Musculoskeletal stiffness [Unknown]
  - Fall [Unknown]
  - Ligament sprain [Unknown]
  - Asthenia [Unknown]
  - Urinary tract infection [Recovering/Resolving]
  - Tremor [Unknown]
  - Masked facies [Unknown]
  - Musculoskeletal stiffness [Unknown]

NARRATIVE: CASE EVENT DATE: 20151223
